FAERS Safety Report 8576525-4 (Version None)
Quarter: 2012Q3

REPORT INFORMATION
  Report Type: 
  Country: None (occurrence: None)
  Receive Date: 20120807
  Receipt Date: 20120726
  Transmission Date: 20120928
  Serious: Yes (Hospitalization)
  Sender: FDA-Public Use
  Company Number: GB-ROCHE-788414

PATIENT
  Sex: Female
  Weight: 93.65 kg

DRUGS (4)
  1. HERCEPTIN [Suspect]
     Dosage: LAST DOSE PRIOR TO SAE: 29 JULY 2011, LAST DOSE 546 MG
     Route: 042
  2. DOCETAXEL [Suspect]
     Indication: BREAST CANCER
     Dosage: DOSE DECREASED, DATE OF LAST DOSE PRIOR TO SAE: 11/NOV/2011
     Route: 042
  3. DOCETAXEL [Suspect]
     Dosage: DOSE DECREASED,LAST DOSE ON 29 JULY 2011, LAST DOSE TAKEN 75 MG
     Route: 042
     Dates: start: 20110729, end: 20111111
  4. HERCEPTIN [Suspect]
     Indication: BREAST CANCER
     Dosage: DOSE HELD.
     Route: 042

REACTIONS (3)
  - DIARRHOEA [None]
  - NEUTROPENIC SEPSIS [None]
  - NEUTROPENIA [None]
